FAERS Safety Report 7793037-6 (Version None)
Quarter: 2011Q4

REPORT INFORMATION
  Report Type: 
  Country: None (occurrence: None)
  Receive Date: 20111003
  Receipt Date: 20110922
  Transmission Date: 20120403
  Serious: Yes (Hospitalization)
  Sender: FDA-Public Use
  Company Number: US-ACTELION-A-US2011-54588

PATIENT

DRUGS (1)
  1. TRACLEER [Suspect]
     Indication: PULMONARY ARTERIAL HYPERTENSION
     Dosage: UNK MG, UNK
     Route: 048
     Dates: start: 20110803

REACTIONS (5)
  - HAEMORRHAGE [None]
  - TRANSFUSION [None]
  - BLOOD URINE PRESENT [None]
  - GASTROINTESTINAL HAEMORRHAGE [None]
  - MELAENA [None]
